FAERS Safety Report 8258613-5 (Version None)
Quarter: 2012Q2

REPORT INFORMATION
  Report Type: 
  Country: None (occurrence: None)
  Receive Date: 20120404
  Receipt Date: 20120326
  Transmission Date: 20120825
  Serious: Yes (Other)
  Sender: FDA-Public Use
  Company Number: JP-BRISTOL-MYERS SQUIBB COMPANY-16451429

PATIENT
  Age: 75 Year
  Sex: Male

DRUGS (6)
  1. ERBITUX [Suspect]
     Indication: COLORECTAL CANCER
     Dosage: ROUTE OF ADM:IV
     Route: 041
  2. CANDESARTAN CILEXETIL [Concomitant]
  3. PROTECADIN [Concomitant]
  4. REBAMIPIDE [Concomitant]
  5. IRINOTECAN HCL [Concomitant]
     Indication: COLORECTAL CANCER
     Route: 042
  6. URSO 250 [Concomitant]

REACTIONS (1)
  - BILE DUCT CANCER [None]
